FAERS Safety Report 4356445-1 (Version None)
Quarter: 2004Q2

REPORT INFORMATION
  Report Type: 
  Country: None (occurrence: None)
  Receive Date: 20040512
  Receipt Date: 20040226
  Transmission Date: 20050107
  Serious: No
  Sender: FDA-Public Use
  Company Number: US-GLAXOSMITHKLINE-A0500397A

PATIENT
  Age: 53 Year
  Sex: Male

DRUGS (2)
  1. RELAFEN [Suspect]
     Dosage: 1000MG TWICE PER DAY
     Route: 048
  2. PROPRANOLOL [Concomitant]

REACTIONS (1)
  - DIARRHOEA [None]
